FAERS Safety Report 25332494 (Version 1)
Quarter: 2025Q2

REPORT INFORMATION
  Report Type: Spontaneous
  Country: US (occurrence: US)
  Receive Date: 20250519
  Receipt Date: 20250519
  Transmission Date: 20250717
  Serious: No
  Sender: CALLIDITAS THERAPEUTICS AB
  Company Number: US-Calliditas-2025CAL01232

PATIENT
  Age: 56 Year
  Sex: Female

DRUGS (4)
  1. TARPEYO [Suspect]
     Active Substance: BUDESONIDE
     Indication: Chronic kidney disease
     Route: 048
     Dates: start: 20250318
  2. DIOVAN [Concomitant]
     Active Substance: VALSARTAN
  3. JARDIANCE [Concomitant]
     Active Substance: EMPAGLIFLOZIN
  4. PROTONIX [Concomitant]
     Active Substance: PANTOPRAZOLE SODIUM

REACTIONS (4)
  - Weight increased [Unknown]
  - Glycosylated haemoglobin increased [Unknown]
  - Muscle spasms [Unknown]
  - Middle insomnia [Unknown]

NARRATIVE: CASE EVENT DATE: 20250501
